FAERS Safety Report 20769010 (Version 1)
Quarter: 2022Q2

REPORT INFORMATION
  Report Type: Spontaneous
  Country: HU (occurrence: HU)
  Receive Date: 20220429
  Receipt Date: 20220429
  Transmission Date: 20220721
  Serious: Yes (Other)
  Sender: FDA-Public Use
  Company Number: HU-AMGEN-HUNSP2022041908

PATIENT
  Sex: Male

DRUGS (1)
  1. PROLIA [Suspect]
     Active Substance: DENOSUMAB
     Indication: Osteoporosis
     Dosage: UNK
     Route: 065

REACTIONS (4)
  - Spinal compression fracture [Unknown]
  - Fall [Unknown]
  - Arthralgia [Recovering/Resolving]
  - Myalgia [Unknown]

NARRATIVE: CASE EVENT DATE: 20220301
